FAERS Safety Report 10449477 (Version 2)
Quarter: 2017Q4

REPORT INFORMATION
  Report Type: Spontaneous
  Country: JP (occurrence: JP)
  Receive Date: 20140912
  Receipt Date: 20171027
  Transmission Date: 20180320
  Serious: Yes (Other)
  Sender: FDA-Public Use
  Company Number: PHHY2014JP118062

PATIENT
  Age: 65 Year
  Sex: Male

DRUGS (1)
  1. AFINITOR [Suspect]
     Active Substance: EVEROLIMUS
     Indication: RENAL CELL CARCINOMA
     Dosage: 10 MG, QD
     Route: 065

REACTIONS (7)
  - Mouth haemorrhage [Unknown]
  - Dysgeusia [Unknown]
  - Decreased appetite [Unknown]
  - Rash [Unknown]
  - Malignant neoplasm progression [Unknown]
  - Blood glucose increased [Unknown]
  - Oedema [Unknown]
